FAERS Safety Report 7570009-8 (Version None)
Quarter: 2011Q2

REPORT INFORMATION
  Report Type: 
  Country: None (occurrence: None)
  Receive Date: 20110624
  Receipt Date: 20110616
  Transmission Date: 20111010
  Serious: Yes (Hospitalization)
  Sender: FDA-Public Use
  Company Number: US-ASTELLAS-2011US002911

PATIENT
  Age: 72 Year
  Sex: Male
  Weight: 95 kg

DRUGS (2)
  1. ERLOTINIB HYDROCHLORIDE [Suspect]
     Indication: LUNG ADENOCARCINOMA
     Dosage: 100 MG, QHS
     Route: 048
     Dates: start: 20110525, end: 20110606
  2. AZD6244 HYDROGEN SULFATE [Suspect]
     Indication: LUNG ADENOCARCINOMA
     Dosage: 150 MG, UID/QD
     Route: 048
     Dates: start: 20110525, end: 20110607

REACTIONS (12)
  - DEHYDRATION [None]
  - OCCULT BLOOD POSITIVE [None]
  - FAECAL INCONTINENCE [None]
  - RASH [None]
  - PNEUMONIA [None]
  - HYPOXIA [None]
  - FATIGUE [None]
  - HAEMOGLOBIN ABNORMAL [None]
  - METASTASIS [None]
  - PNEUMONITIS [None]
  - DYSGEUSIA [None]
  - WEIGHT DECREASED [None]
